FAERS Safety Report 23052127 (Version 3)
Quarter: 2023Q4

REPORT INFORMATION
  Report Type: Spontaneous
  Country: JP (occurrence: JP)
  Receive Date: 20231010
  Receipt Date: 20231116
  Transmission Date: 20240110
  Serious: Yes (Hospitalization, Other)
  Sender: FDA-Public Use
  Company Number: JP-TAKEDA-2023TJP004553

PATIENT
  Age: 9 Decade

DRUGS (2)
  1. ALUNBRIG [Suspect]
     Active Substance: BRIGATINIB
     Indication: Non-small cell lung cancer
     Dosage: 180 MILLIGRAM
     Route: 048
     Dates: start: 20230317
  2. ALUNBRIG [Suspect]
     Active Substance: BRIGATINIB
     Dosage: UNK
     Route: 048

REACTIONS (2)
  - Non-small cell lung cancer [Recovering/Resolving]
  - Interstitial lung disease [Recovering/Resolving]
